FAERS Safety Report 12502698 (Version 2)
Quarter: 2016Q3

REPORT INFORMATION
  Report Type: Spontaneous
  Country: US (occurrence: US)
  Receive Date: 20160628
  Receipt Date: 20160712
  Transmission Date: 20161109
  Serious: Yes (Death)
  Sender: FDA-Public Use
  Company Number: US-ROCHE-1783245

PATIENT
  Age: 26 Year
  Sex: Female
  Weight: 59.3 kg

DRUGS (1)
  1. ACTIVASE [Suspect]
     Active Substance: ALTEPLASE
     Indication: CEREBROVASCULAR ACCIDENT
     Route: 065

REACTIONS (2)
  - Cerebral infarction [Fatal]
  - Brain herniation [Fatal]

NARRATIVE: CASE EVENT DATE: 20160606
